FAERS Safety Report 4374263-5 (Version None)
Quarter: 2004Q2

REPORT INFORMATION
  Report Type: 
  Country: None (occurrence: None)
  Receive Date: 20040602
  Receipt Date: 20040226
  Transmission Date: 20050107
  Serious: No
  Sender: FDA-Public Use
  Company Number: 200330535BWH

PATIENT
  Age: 65 Year
  Sex: Male
  Weight: 84.8226 kg

DRUGS (9)
  1. LEVITRA [Suspect]
     Indication: ERECTILE DYSFUNCTION
     Dosage: 10 MG, TOTAL DAILY, ORAL;  20 MG, TOTAL DAILY, ORAL;  20 MG, TOTAL DAILY, ORAL
     Route: 048
     Dates: start: 20031101
  2. LEVITRA [Suspect]
     Indication: ERECTILE DYSFUNCTION
     Dosage: 10 MG, TOTAL DAILY, ORAL;  20 MG, TOTAL DAILY, ORAL;  20 MG, TOTAL DAILY, ORAL
     Route: 048
     Dates: start: 20031216
  3. LEVITRA [Suspect]
     Indication: ERECTILE DYSFUNCTION
     Dosage: 10 MG, TOTAL DAILY, ORAL;  20 MG, TOTAL DAILY, ORAL;  20 MG, TOTAL DAILY, ORAL
     Route: 048
     Dates: start: 20040101
  4. FLOMAX [Concomitant]
  5. SELEGILINE HYDROCHLORIDE [Concomitant]
  6. MULTI-VITAMIN [Concomitant]
  7. VITAMIN E [Concomitant]
  8. METROLOTION [Concomitant]
  9. VIAGRA [Concomitant]

REACTIONS (5)
  - CHEST PAIN [None]
  - DYSPEPSIA [None]
  - DYSPHAGIA [None]
  - ERECTILE DYSFUNCTION [None]
  - GASTROOESOPHAGEAL REFLUX DISEASE [None]
